FAERS Safety Report 6024011-8 (Version None)
Quarter: 2008Q4

REPORT INFORMATION
  Report Type: 
  Country: None (occurrence: None)
  Receive Date: 20081230
  Receipt Date: 20081223
  Transmission Date: 20090506
  Serious: Yes (Death)
  Sender: FDA-Public Use
  Company Number: US-ASTRAZENECA-2008AC03464

PATIENT
  Age: 55 Year
  Sex: Male

DRUGS (1)
  1. BUPIVACAINE [Suspect]
     Route: 051

REACTIONS (1)
  - ADVERSE DRUG REACTION [None]
